FAERS Safety Report 18298333 (Version 2)
Quarter: 2020Q3

REPORT INFORMATION
  Report Type: Spontaneous
  Country: US (occurrence: US)
  Receive Date: 20200922
  Receipt Date: 20200925
  Transmission Date: 20201103
  Serious: No
  Sender: FDA-Public Use
  Company Number: US-PFIZER INC-2020364720

PATIENT
  Age: 19 Year
  Sex: Female

DRUGS (4)
  1. EUCRISA [Suspect]
     Active Substance: CRISABOROLE
     Indication: ECZEMA
  2. EUCRISA [Suspect]
     Active Substance: CRISABOROLE
     Indication: SKIN PAPILLOMA
  3. EUCRISA [Suspect]
     Active Substance: CRISABOROLE
     Indication: ECZEMA ASTEATOTIC
  4. EUCRISA [Suspect]
     Active Substance: CRISABOROLE
     Indication: DERMATITIS
     Dosage: 1 APPLICATION, APPLY ON THE SKIN TWICE A DAY
     Route: 061

REACTIONS (1)
  - Rash [Unknown]
